FAERS Safety Report 22301650 (Version 2)
Quarter: 2023Q2

REPORT INFORMATION
  Report Type: Report from Study
  Country: US (occurrence: US)
  Receive Date: 20230510
  Receipt Date: 20230607
  Transmission Date: 20230721
  Serious: Yes (Other)
  Sender: FDA-Public Use
  Company Number: US-ABBVIE-4759707

PATIENT
  Sex: Female

DRUGS (1)
  1. HUMIRA [Suspect]
     Active Substance: ADALIMUMAB
     Indication: Rheumatoid arthritis
     Route: 058
     Dates: start: 20080629

REACTIONS (13)
  - Femur fracture [Unknown]
  - Pruritus [Unknown]
  - Hip fracture [Unknown]
  - Skin laceration [Unknown]
  - Shoulder fracture [Unknown]
  - Shoulder fracture [Unknown]
  - Gait disturbance [Unknown]
  - Musculoskeletal disorder [Unknown]
  - Loss of consciousness [Recovered/Resolved]
  - Dizziness [Unknown]
  - Fall [Unknown]
  - Traumatic intracranial haemorrhage [Unknown]
  - Syncope [Unknown]

NARRATIVE: CASE EVENT DATE: 20160101
